FAERS Safety Report 15121606 (Version 3)
Quarter: 2018Q4

REPORT INFORMATION
  Report Type: Spontaneous
  Country: PT (occurrence: PT)
  Receive Date: 20180709
  Receipt Date: 20181225
  Transmission Date: 20190204
  Serious: Yes (Hospitalization, Other)
  Sender: FDA-Public Use
  Company Number: PT-AUROBINDO-AUR-APL-2018-034909

PATIENT
  Age: 13 Year
  Sex: Female

DRUGS (6)
  1. IBUPROFEN. [Suspect]
     Active Substance: IBUPROFEN
     Indication: COUGH
  2. IBUPROFEN. [Suspect]
     Active Substance: IBUPROFEN
     Indication: TONSILLITIS
     Dosage: UNK
     Route: 065
  3. IBUPROFEN. [Suspect]
     Active Substance: IBUPROFEN
     Indication: MYALGIA
  4. IBUPROFEN. [Suspect]
     Active Substance: IBUPROFEN
     Indication: RHINORRHOEA
  5. IBUPROFEN. [Suspect]
     Active Substance: IBUPROFEN
     Indication: PYREXIA
  6. IBUPROFEN. [Suspect]
     Active Substance: IBUPROFEN
     Indication: HEADACHE

REACTIONS (16)
  - Genital ulceration [Recovered/Resolved]
  - Oedema genital [Recovered/Resolved]
  - Genital pain [Unknown]
  - Genital tract inflammation [Recovered/Resolved]
  - Dysuria [Unknown]
  - Condition aggravated [Unknown]
  - Mobility decreased [Unknown]
  - Genital haemorrhage [Recovered/Resolved]
  - Lip oedema [Recovered/Resolved]
  - Condition aggravated [Recovered/Resolved]
  - Vulvovaginal injury [Recovered/Resolved]
  - Vulval disorder [Recovered/Resolved]
  - Genital odour [Recovered/Resolved]
  - Lip erythema [Recovered/Resolved]
  - Urinary retention [Recovered/Resolved]
  - Vulval ulceration [Recovered/Resolved]
